FAERS Safety Report 9044105 (Version 2)
Quarter: 2013Q2

REPORT INFORMATION
  Report Type: Spontaneous
  Country: DK (occurrence: CA)
  Receive Date: 20130130
  Receipt Date: 20130523
  Transmission Date: 20140414
  Serious: Yes (Hospitalization, Other)
  Sender: FDA-Public Use
  Company Number: CA-FRI-1000042207

PATIENT
  Age: 25 Year
  Sex: Female
  Weight: 50 kg

DRUGS (6)
  1. ESCITALOPRAM [Suspect]
  2. AMITRIPTYLINE [Suspect]
  3. FLUOXETINE [Suspect]
  4. GABAPENTIN [Suspect]
  5. OLANZAPINE [Suspect]
  6. QUETIAPINE [Suspect]

REACTIONS (13)
  - Coma [Unknown]
  - Electrocardiogram QRS complex prolonged [Unknown]
  - Electrocardiogram QT prolonged [Unknown]
  - Hypocalcaemia [Unknown]
  - Hypokalaemia [Unknown]
  - Intentional overdose [Unknown]
  - Suicide attempt [Unknown]
  - Tachycardia [Unknown]
  - Cardiotoxicity [Unknown]
  - Haemodynamic instability [Unknown]
  - Blood pressure systolic decreased [Unknown]
  - Pulse absent [Unknown]
  - Hypotension [Unknown]
